FAERS Safety Report 8799282 (Version 1)
Quarter: 2012Q4

REPORT INFORMATION
  Report Type: Spontaneous
  Country: DK (occurrence: None)
  Receive Date: 20120914
  Receipt Date: 20120914
  Transmission Date: 20130627
  Serious: Yes (Life-Threatening, Hospitalization, Other)
  Sender: FDA-Public Use
  Company Number: 2012MA011010

PATIENT
  Age: 49 Year
  Sex: Female

DRUGS (8)
  1. METFORMIN HYDROCHLORIDE [Suspect]
     Route: 048
     Dates: end: 20120820
  2. ADCAL-D3 [Concomitant]
  3. CODEINE [Concomitant]
  4. OMEPRAZOLE [Concomitant]
  5. PRAVASTATIN [Concomitant]
  6. ACETYLSALICYLIC ACID [Concomitant]
  7. CYCLIZINE [Concomitant]
  8. PROCHLORPERAZINE [Concomitant]

REACTIONS (3)
  - Metabolic acidosis [None]
  - Renal failure acute [None]
  - Acute respiratory distress syndrome [None]
